FAERS Safety Report 14664994 (Version 1)
Quarter: 2018Q1

REPORT INFORMATION
  Report Type: Spontaneous
  Country: GB (occurrence: GB)
  Receive Date: 20180321
  Receipt Date: 20180321
  Transmission Date: 20180509
  Serious: Yes (Life-Threatening, Hospitalization)
  Sender: FDA-Public Use
  Company Number: GB-JNJFOC-20180326201

PATIENT
  Age: 73 Year
  Sex: Male
  Weight: 114 kg

DRUGS (5)
  1. RIVAROXABAN [Suspect]
     Active Substance: RIVAROXABAN
     Indication: DEEP VEIN THROMBOSIS
     Route: 048
     Dates: start: 20160108, end: 20171103
  2. FOLIC ACID. [Concomitant]
     Active Substance: FOLIC ACID
     Route: 065
  3. CARBAMAZEPINE. [Concomitant]
     Active Substance: CARBAMAZEPINE
     Route: 065
  4. PHENYTOIN SODIUM. [Concomitant]
     Active Substance: PHENYTOIN SODIUM
     Route: 065
  5. COLECALCIFEROL [Concomitant]
     Active Substance: CHOLECALCIFEROL
     Route: 065

REACTIONS (2)
  - Treatment failure [Unknown]
  - Deep vein thrombosis [Recovered/Resolved]

NARRATIVE: CASE EVENT DATE: 20171103
